FAERS Safety Report 14933202 (Version 1)
Quarter: 2018Q2

REPORT INFORMATION
  Report Type: Spontaneous
  Country: PR (occurrence: PR)
  Receive Date: 20180524
  Receipt Date: 20180524
  Transmission Date: 20180711
  Serious: Yes (Other)
  Sender: FDA-Public Use
  Company Number: PR-PFIZER INC-2018211937

PATIENT
  Age: 70 Year
  Sex: Female
  Weight: 55.78 kg

DRUGS (1)
  1. IBRANCE [Suspect]
     Active Substance: PALBOCICLIB
     Indication: BREAST CANCER
     Dosage: 125 MG, DAILY
     Route: 048
     Dates: start: 20180223

REACTIONS (2)
  - Pyrexia [Not Recovered/Not Resolved]
  - White blood cell count decreased [Not Recovered/Not Resolved]
